FAERS Safety Report 22019815 (Version 1)
Quarter: 2023Q1

REPORT INFORMATION
  Report Type: Spontaneous
  Country: US (occurrence: US)
  Receive Date: 20230222
  Receipt Date: 20230222
  Transmission Date: 20230418
  Serious: Yes (Death, Hospitalization, Other)
  Sender: FDA-Public Use
  Company Number: US-APOTEX-2023AP003729

PATIENT
  Age: 36 Year
  Sex: Female

DRUGS (5)
  1. ACETAMINOPHEN [Suspect]
     Active Substance: ACETAMINOPHEN
     Indication: Product used for unknown indication
     Dosage: 80 DOSAGE FORM
     Route: 048
  2. CETIRIZINE HYDROCHLORIDE\PSEUDOEPHEDRINE HYDROCHLORIDE [Concomitant]
     Active Substance: CETIRIZINE HYDROCHLORIDE\PSEUDOEPHEDRINE HYDROCHLORIDE
     Indication: Product used for unknown indication
     Dosage: UNK
     Route: 065
  3. FAMOTIDINE [Concomitant]
     Active Substance: FAMOTIDINE
     Indication: Product used for unknown indication
     Dosage: UNK
     Route: 065
  4. FLUTICASONE [Concomitant]
     Active Substance: FLUTICASONE
     Indication: Product used for unknown indication
     Dosage: UNK
     Route: 065
  5. PAROXETINE [Concomitant]
     Active Substance: PAROXETINE
     Indication: Product used for unknown indication
     Dosage: UNK
     Route: 065

REACTIONS (19)
  - Hepatic encephalopathy [Fatal]
  - Sepsis [Fatal]
  - Acute kidney injury [Fatal]
  - Pulmonary oedema [Fatal]
  - Intentional overdose [Fatal]
  - Lethargy [Fatal]
  - Analgesic drug level increased [Fatal]
  - International normalised ratio increased [Fatal]
  - Hypoglycaemia [Fatal]
  - Tachypnoea [Fatal]
  - Hyporesponsive to stimuli [Fatal]
  - Abdominal distension [Fatal]
  - Blood lactic acid increased [Fatal]
  - Sinus tachycardia [Fatal]
  - Acidosis [Fatal]
  - Hypervolaemia [Fatal]
  - Toxicity to various agents [Fatal]
  - Prothrombin level increased [Fatal]
  - Acute hepatic failure [Fatal]
